FAERS Safety Report 18360537 (Version 4)
Quarter: 2020Q4

REPORT INFORMATION
  Report Type: Spontaneous
  Country: US (occurrence: US)
  Receive Date: 20201008
  Receipt Date: 20201119
  Transmission Date: 20210114
  Serious: No
  Sender: FDA-Public Use
  Company Number: US-PFIZER INC-2020382245

PATIENT
  Sex: Female

DRUGS (3)
  1. DEMEROL [Suspect]
     Active Substance: MEPERIDINE HYDROCHLORIDE
     Indication: MIGRAINE
     Dosage: UNK
  2. DEMEROL [Suspect]
     Active Substance: MEPERIDINE HYDROCHLORIDE
     Dosage: 50 MG, 3-4X/WEEK (100MG/2ML)
  3. HYDROCODONE BITARTRATE AND ACETAMINOPHEN [Concomitant]
     Active Substance: ACETAMINOPHEN\HYDROCODONE BITARTRATE
     Indication: MIGRAINE
     Dosage: 2 DF, DAILY (5/325, ONE, THEN A SECOND ONE 4H  LATER W/ A FULL GLASS OF WATER AND CRACKERS/COOKIES)
     Route: 048

REACTIONS (6)
  - Off label use [Unknown]
  - Product use in unapproved indication [Unknown]
  - Multiple use of single-use product [Unknown]
  - Product complaint [Unknown]
  - Weight increased [Recovering/Resolving]
  - Poor quality product administered [Unknown]

NARRATIVE: CASE EVENT DATE: 202001
